FAERS Safety Report 26066103 (Version 1)
Quarter: 2025Q4

REPORT INFORMATION
  Report Type: Spontaneous
  Country: CL (occurrence: CL)
  Receive Date: 20251119
  Receipt Date: 20251119
  Transmission Date: 20260117
  Serious: Yes (Other)
  Sender: ASTELLAS
  Company Number: CL-ASTELLAS-2025-AER-062766

PATIENT
  Age: 72 Year
  Sex: Female

DRUGS (1)
  1. XOSPATA [Suspect]
     Active Substance: GILTERITINIB
     Indication: Acute myeloid leukaemia
     Route: 048

REACTIONS (4)
  - Acute myeloid leukaemia [Unknown]
  - Acute myeloid leukaemia recurrent [Unknown]
  - Prescribed underdose [Unknown]
  - Off label use [Unknown]
